FAERS Safety Report 9690884 (Version 1)
Quarter: 2013Q4

REPORT INFORMATION
  Report Type: Spontaneous
  Country: IT (occurrence: IT)
  Receive Date: 20131115
  Receipt Date: 20131115
  Transmission Date: 20140711
  Serious: Yes (Hospitalization)
  Sender: FDA-Public Use
  Company Number: PHHY2013IT129770

PATIENT
  Age: 66 Year
  Sex: Female

DRUGS (1)
  1. CARBAMAZEPINE [Suspect]
     Dosage: 12 G, UNK

REACTIONS (8)
  - Toxicity to various agents [Unknown]
  - Trismus [Unknown]
  - Gaze palsy [Unknown]
  - Disorientation [Unknown]
  - Bradycardia [Unknown]
  - Vomiting [Unknown]
  - Mydriasis [Unknown]
  - Intentional overdose [Unknown]
